FAERS Safety Report 14454900 (Version 1)
Quarter: 2018Q1

REPORT INFORMATION
  Report Type: Spontaneous
  Country: JP (occurrence: JP)
  Receive Date: 20180129
  Receipt Date: 20180129
  Transmission Date: 20180509
  Serious: Yes (Hospitalization)
  Sender: FDA-Public Use
  Company Number: JP-GE HEALTHCARE-OMPQ-NO-1003L-0152

PATIENT

DRUGS (5)
  1. KAKONTO [Concomitant]
     Indication: NASOPHARYNGITIS
     Dosage: UNK UNK, TID
     Route: 065
     Dates: start: 20081113, end: 20081117
  2. GASTER [Concomitant]
     Active Substance: FAMOTIDINE
     Indication: GASTRITIS
     Dosage: 20 MG, QD
     Route: 048
  3. PL GRAN [Concomitant]
     Indication: NASOPHARYNGITIS
     Dosage: 1 G, TID
     Route: 048
     Dates: start: 20081113, end: 20081117
  4. DIOVAN [Concomitant]
     Active Substance: VALSARTAN
     Indication: HYPERTENSION
     Dosage: 80 MG, QD
     Route: 048
  5. OMNIPAQUE [Suspect]
     Active Substance: IOHEXOL
     Indication: PANCREATIC CYST
     Dosage: 150 ML, SINGLE
     Route: 042
     Dates: start: 20081118, end: 20081118

REACTIONS (1)
  - Acute generalised exanthematous pustulosis [Recovered/Resolved]

NARRATIVE: CASE EVENT DATE: 20081118
